FAERS Safety Report 8616399-6 (Version None)
Quarter: 2012Q3

REPORT INFORMATION
  Report Type: 
  Country: None (occurrence: None)
  Receive Date: 20120823
  Receipt Date: 20120820
  Transmission Date: 20120928
  Serious: Yes (Other)
  Sender: FDA-Public Use
  Company Number: US-FRI-1000038075

PATIENT
  Sex: Female

DRUGS (1)
  1. DALIRESP [Suspect]

REACTIONS (1)
  - ANAPHYLACTIC SHOCK [None]
